FAERS Safety Report 5952489-4 (Version None)
Quarter: 2008Q4

REPORT INFORMATION
  Report Type: 
  Country: None (occurrence: None)
  Receive Date: 20081113
  Receipt Date: 20081102
  Transmission Date: 20090506
  Serious: Yes (Other)
  Sender: FDA-Public Use
  Company Number: US-PFIZER INC-2008092414

PATIENT
  Sex: Female
  Weight: 52.2 kg

DRUGS (7)
  1. NEURONTIN [Suspect]
     Indication: NEUROPATHY PERIPHERAL
  2. NEURONTIN [Suspect]
     Indication: LIMB DISCOMFORT
  3. CELEBREX [Concomitant]
  4. MOBIC [Concomitant]
  5. ZOLOFT [Concomitant]
  6. ULTRAM [Concomitant]
  7. PLAQUENIL [Concomitant]

REACTIONS (8)
  - ANAEMIA [None]
  - BLOOD CALCIUM DECREASED [None]
  - COW'S MILK INTOLERANCE [None]
  - DRUG TOLERANCE [None]
  - LIMB DISCOMFORT [None]
  - OSTEOPOROSIS [None]
  - RHEUMATOID ARTHRITIS [None]
  - VITAMIN D DECREASED [None]
